FAERS Safety Report 6653789-5 (Version None)
Quarter: 2010Q1

REPORT INFORMATION
  Report Type: 
  Country: None (occurrence: None)
  Receive Date: 20100326
  Receipt Date: 20100322
  Transmission Date: 20100710
  Serious: Yes (Death, Hospitalization)
  Sender: FDA-Public Use
  Company Number: A0842430A

PATIENT
  Sex: Male

DRUGS (11)
  1. TELZIR [Suspect]
     Indication: HIV INFECTION
     Dosage: 700MG TWICE PER DAY
     Route: 065
     Dates: start: 20080901
  2. AZT [Suspect]
     Indication: HIV INFECTION
     Route: 065
     Dates: start: 19960101, end: 19990101
  3. 3TC [Suspect]
     Indication: HIV INFECTION
     Route: 065
     Dates: start: 19960101, end: 19990101
  4. LAMIVUDINE [Suspect]
     Indication: HIV INFECTION
     Dosage: 2TAB PER DAY
     Route: 065
     Dates: start: 19990101
  5. ZIDOVUDINE [Suspect]
     Indication: HIV INFECTION
     Route: 065
     Dates: start: 20020101, end: 20080301
  6. SAQUINAVIR [Suspect]
     Indication: HIV INFECTION
     Route: 065
     Dates: start: 19960101, end: 19990101
  7. STAVUDINE [Suspect]
     Indication: HIV INFECTION
     Route: 065
     Dates: start: 19990101, end: 20020101
  8. EFAVIRENZ [Suspect]
     Indication: HIV INFECTION
     Route: 065
     Dates: start: 19990101, end: 20020101
  9. LOPINAVIR [Suspect]
     Indication: HIV INFECTION
     Route: 065
     Dates: start: 20080301, end: 20080901
  10. RITONAVIR [Suspect]
     Indication: HIV INFECTION
     Dosage: 100MG TWICE PER DAY
     Route: 065
     Dates: start: 20080301
  11. TENOFOVIR [Suspect]
     Indication: HIV INFECTION
     Dosage: 1TAB PER DAY
     Route: 065
     Dates: start: 20080301

REACTIONS (5)
  - ACUTE MYOCARDIAL INFARCTION [None]
  - BLOOD TRIGLYCERIDES INCREASED [None]
  - CARDIOPULMONARY FAILURE [None]
  - DIARRHOEA [None]
  - VIROLOGIC FAILURE [None]
